FAERS Safety Report 23130028 (Version 2)
Quarter: 2023Q4

REPORT INFORMATION
  Report Type: Spontaneous
  Country: IT (occurrence: IT)
  Receive Date: 20231031
  Receipt Date: 20231114
  Transmission Date: 20240109
  Serious: Yes (Other)
  Sender: FDA-Public Use
  Company Number: None

PATIENT
  Age: 18 Year
  Sex: Male

DRUGS (26)
  1. CARBOPLATIN [Suspect]
     Active Substance: CARBOPLATIN
     Indication: Primary mediastinal large B-cell lymphoma
     Dosage: UNK UNK, CYCLIC (RECEIVED TWO CYCLES OF R-ICE (RITUXIMAB IFOSFAMIDE, CARBOPLATIN, ETOPOSIDE))
     Route: 065
  2. CYCLOPHOSPHAMIDE [Suspect]
     Active Substance: CYCLOPHOSPHAMIDE
     Indication: Primary mediastinal large B-cell lymphoma
     Dosage: ON DAY 1 AND 2 OF PREPHASE
     Route: 042
  3. CYTARABINE [Suspect]
     Active Substance: CYTARABINE
     Dosage: 150 MG/M2 IN TWO DOSES (DOSES ARE 12 HOURS APART) FOR 1 HOUR ON DAY 4 AND 5: 2 COURSES OF COURSE AA
     Route: 065
  4. CYTARABINE [Suspect]
     Active Substance: CYTARABINE
     Indication: Primary mediastinal large B-cell lymphoma
     Dosage: 150 MG/M2, UNK (150 MG/M2 IN TWO DOSES (DOSES ARE 12 HOURS APART) FOR 1 HOUR ON DAY 4 AND 5: 2 COU)
     Route: 042
  5. CYTARABINE [Suspect]
     Active Substance: CYTARABINE
     Dosage: 3 MG/M2, UNK (IN TWO DOSES (DOSES ARE 12 HOURS APART) FOR 3 HOURS ON DAY 1 AND 2: 2 COURSES)
     Route: 042
  6. CYTARABINE [Suspect]
     Active Substance: CYTARABINE
     Dosage: METHOTREXATE, CYTARABINE AND PREDNISOLONE (12MG+30MG+10MG) ON DAY 1: IN PREPHASE THERAPY, 2  COURSE
     Route: 037
  7. DEXAMETHASONE [Suspect]
     Active Substance: DEXAMETHASONE
     Indication: Primary mediastinal large B-cell lymphoma
     Dosage: 10 MG/M2, UNK
     Route: 042
  8. DEXAMETHASONE [Suspect]
     Active Substance: DEXAMETHASONE
     Dosage: 10 MG/M2, UNK
     Route: 048
  9. DEXAMETHASONE [Suspect]
     Active Substance: DEXAMETHASONE
     Dosage: 10 MG/M2, UNK  (SUBDIVIDED IN 3 DOSES)
     Route: 065
  10. DEXAMETHASONE [Suspect]
     Active Substance: DEXAMETHASONE
     Dosage: 10 MG/M2, UNK (ON DAY 1 AND 2 OF PREPHASE THERAPY)
     Route: 065
  11. DEXAMETHASONE [Suspect]
     Active Substance: DEXAMETHASONE
     Dosage: 10 MG/M2, UNK (RECEIVED 20 MG/M2 IN 2 COURSES OF COURSE CC ON DAY 0-5)
     Route: 042
  12. DEXAMETHASONE [Suspect]
     Active Substance: DEXAMETHASONE
     Dosage: 10 MG/M2, UNK (RECEIVED 20 MG/M2 IN 2 COURSES OF COURSE CC ON DAY 0-5)
     Route: 065
  13. DEXAMETHASONE [Suspect]
     Active Substance: DEXAMETHASONE
     Dosage: ON DAY 1 AND 2 OF PREPHASE THERAPY
     Route: 065
  14. DOXORUBICIN [Suspect]
     Active Substance: DOXORUBICIN
     Indication: Primary mediastinal large B-cell lymphoma
     Dosage: 300 MG/M2, QD (30 MG/M2 DAILY FOR 4 HOURS ON DAY 4 AND 5 (3 COURSES OF COURSE BB))
     Route: 042
  15. ETOPOSIDE [Suspect]
     Active Substance: ETOPOSIDE
     Indication: Primary mediastinal large B-cell lymphoma
     Dosage: 100 MG/M2, CYCLIC (FOR 2 HOURS ON DAY 4 AND 5 (2 COURSES OF COURSE AA AND 2 COURSES OF COURSE CC)
     Route: 042
  16. IFOSFAMIDE [Suspect]
     Active Substance: IFOSFAMIDE
     Indication: Primary mediastinal large B-cell lymphoma
     Dosage: 800 MG/M2, RECEIVED TWO CYCLES OF R-ICE (RITUXIMAB IFOSFAMIDE, CARBOPLATIN, ETOPOSIDE)
     Route: 042
  17. IFOSFAMIDE [Suspect]
     Active Substance: IFOSFAMIDE
     Dosage: 800MG/M2FOR 1 HOUR ON DAY 1 TO 5: COURSE AA(RECEIVED2CYCLES OF R-ICE)
     Route: 041
  18. IFOSFAMIDE [Suspect]
     Active Substance: IFOSFAMIDE
     Dosage: RECEIVED TWO CYCLES OF R-ICE (RITUXIMAB IFOSFAMIDE, CARBOPLATIN, ETOPOSIDE).
     Route: 065
  19. IFOSFAMIDE [Suspect]
     Active Substance: IFOSFAMIDE
     Indication: Product used for unknown indication
     Dosage: 800 MG/M2 FOR 1 HOUR ON DAY 1 TO 5: COURSE AA (2 COURSES)
     Route: 042
  20. LEUCOVORIN [Suspect]
     Active Substance: LEUCOVORIN\LEUCOVORIN CALCIUM
     Indication: Primary mediastinal large B-cell lymphoma
     Dosage: 15 MG/M2, UNK (AT H 42, 7.5 MG/M2 AT H 48, AND 54 AFTER BEGINNING OF MTX)
     Route: 042
  21. METHOTREXATE [Suspect]
     Active Substance: METHOTREXATE
     Indication: Primary mediastinal large B-cell lymphoma
     Dosage: 3 G/M2, Q24H
     Route: 042
  22. MABTHERA [Suspect]
     Active Substance: RITUXIMAB
     Indication: Primary mediastinal large B-cell lymphoma
     Dosage: 375 MG/M2, UNK (6 DOSES, ON DAY 0: 2 COURSES OF COURSE AA, 3 COURSES OF COURSE BB AND 2 COURSES OF C
     Route: 042
  23. PREDNISOLONE [Suspect]
     Active Substance: PREDNISOLONE
     Indication: Primary mediastinal large B-cell lymphoma
     Dosage: METHOTREXATE, CYTARABINE AND PREDNISOLONE(12MG+30MG+10MG) ON DAY 1: IN PREPHASE THERAPY, 2
     Route: 042
  24. RITUXIMAB [Suspect]
     Active Substance: RITUXIMAB
     Indication: Product used for unknown indication
     Dosage: RECEIVED TWO CYCLES OF R-ICE (RITUXIMAB IFOSFAMIDE, CARBOPLATIN, ETOPOSIDE).
     Route: 042
  25. VINCRISTINE [Suspect]
     Active Substance: VINCRISTINE
     Indication: Primary mediastinal large B-cell lymphoma
     Dosage: 1.5 MG/M2, UNK (ON DAY 1 (2 COURSES OF COURSE AA AND 3 COURSES OF COURSE BB))
     Route: 042
  26. VINDESINE [Suspect]
     Active Substance: VINDESINE
     Indication: Primary mediastinal large B-cell lymphoma
     Dosage: 3 MG/M2 ON DAY 1 (2 COURSES OF COURSE CC)
     Route: 042

REACTIONS (1)
  - Dyspnoea [Unknown]
